FAERS Safety Report 23700531 (Version 1)
Quarter: 2024Q2

REPORT INFORMATION
  Report Type: Spontaneous
  Country: US (occurrence: US)
  Receive Date: 20240403
  Receipt Date: 20240403
  Transmission Date: 20240716
  Serious: No
  Sender: FDA-Public Use
  Company Number: US-HALEON-USCH2024016075

PATIENT

DRUGS (1)
  1. SENSODYNE PRONAMEL ACTIVE SHIELD COOL MINT [Suspect]
     Active Substance: POTASSIUM NITRATE\SODIUM FLUORIDE
     Indication: Product used for unknown indication

REACTIONS (2)
  - Toothache [Unknown]
  - Hyperaesthesia teeth [Unknown]
